FAERS Safety Report 14427522 (Version 2)
Quarter: 2019Q1

REPORT INFORMATION
  Report Type: Spontaneous
  Country: US (occurrence: US)
  Receive Date: 20180123
  Receipt Date: 20190303
  Transmission Date: 20190417
  Serious: No
  Sender: FDA-Public Use
  Company Number: US-IMPAX LABORATORIES, INC-2017-IPXL-03844

PATIENT
  Age: 62 Year
  Sex: Female

DRUGS (3)
  1. RYTARY [Suspect]
     Active Substance: CARBIDOPA\LEVODOPA
     Dosage: 195 MG, 2 CAPSULES, UNK
     Route: 048
     Dates: start: 201711
  2. RYTARY [Suspect]
     Active Substance: CARBIDOPA\LEVODOPA
     Indication: PARKINSON^S DISEASE
     Dosage: 23.75/95 MG ,UNK
     Route: 048
  3. RYTARY [Suspect]
     Active Substance: CARBIDOPA\LEVODOPA
     Dosage: 9 CAPS PER DAY OF THE 95 MG ALONG WITH THE 145 MG STRENGTH
     Route: 048

REACTIONS (9)
  - Dyspnoea [Recovered/Resolved]
  - Dizziness [Recovered/Resolved]
  - Psychomotor hyperactivity [Recovered/Resolved]
  - Balance disorder [Recovered/Resolved]
  - Feeling jittery [Recovered/Resolved]
  - Labelled drug-food interaction medication error [Unknown]
  - Therapeutic response shortened [Not Recovered/Not Resolved]
  - Muscle rigidity [Not Recovered/Not Resolved]
  - Agitation [Recovered/Resolved]

NARRATIVE: CASE EVENT DATE: 201711
